FAERS Safety Report 24032680 (Version 1)
Quarter: 2024Q3

REPORT INFORMATION
  Report Type: Spontaneous
  Country: RU (occurrence: RU)
  Receive Date: 20240701
  Receipt Date: 20240701
  Transmission Date: 20241016
  Serious: Yes (Other)
  Sender: SANOFI AVENTIS
  Company Number: RU-SA-2024SA160671

PATIENT
  Age: 46 Year
  Sex: Male

DRUGS (4)
  1. ELOCTA [Suspect]
     Active Substance: EFMOROCTOCOG ALFA
     Indication: Factor VIII deficiency
     Dosage: 4000 IU, 9 TIMES A MONTH
     Route: 042
     Dates: start: 202306
  2. ELOCTA [Suspect]
     Active Substance: EFMOROCTOCOG ALFA
     Indication: Factor VIII deficiency
     Dosage: 4000 IU, 9 TIMES A MONTH
     Route: 042
     Dates: start: 202306
  3. ELOCTA [Suspect]
     Active Substance: EFMOROCTOCOG ALFA
     Dosage: UNK UNK, QD (HAD A JOINT REPLACEMENT SURGERY ONE MONTH AGO, DURING WHICH THE PRODUCT WAS ADMINISTRAT
     Route: 042
     Dates: start: 202404
  4. ELOCTA [Suspect]
     Active Substance: EFMOROCTOCOG ALFA
     Dosage: UNK UNK, QD (HAD A JOINT REPLACEMENT SURGERY ONE MONTH AGO, DURING WHICH THE PRODUCT WAS ADMINISTRAT
     Route: 042
     Dates: start: 202404

REACTIONS (2)
  - Haemophilic arthropathy [Unknown]
  - Pruritus [Unknown]

NARRATIVE: CASE EVENT DATE: 20240101
